FAERS Safety Report 6854982-9 (Version None)
Quarter: 2010Q3

REPORT INFORMATION
  Report Type: 
  Country: None (occurrence: None)
  Receive Date: 20100717
  Receipt Date: 20080505
  Transmission Date: 20110219
  Serious: Yes (Other)
  Sender: FDA-Public Use
  Company Number: US-PFIZER INC-2008000302

PATIENT
  Sex: Female
  Weight: 82.272 kg

DRUGS (14)
  1. CHANTIX [Suspect]
     Indication: SMOKING CESSATION THERAPY
     Route: 048
     Dates: start: 20071224
  2. CHANTIX [Suspect]
     Indication: CORONARY ARTERY DISEASE
  3. COPAXONE [Concomitant]
  4. HYDROCODONE [Concomitant]
  5. OXYCODONE HCL [Concomitant]
  6. NITROGLYCERIN [Concomitant]
  7. PRILOSEC [Concomitant]
  8. CARVEDILOL [Concomitant]
  9. ISOSORBIDE MONONITRATE [Concomitant]
  10. TICLOPIDINE HCL [Concomitant]
  11. LYRICA [Concomitant]
  12. ASPIRIN [Concomitant]
  13. INSULIN [Concomitant]
  14. WARFARIN SODIUM [Concomitant]

REACTIONS (5)
  - ANXIETY [None]
  - BURNING SENSATION [None]
  - CHEST PAIN [None]
  - CONVULSION [None]
  - DEPRESSION [None]
